FAERS Safety Report 9573383 (Version 1)
Quarter: 2013Q3

REPORT INFORMATION
  Report Type: Spontaneous
  Country: US (occurrence: None)
  Receive Date: 20130930
  Receipt Date: 20130930
  Transmission Date: 20140515
  Serious: Yes (Hospitalization)
  Sender: FDA-Public Use
  Company Number: None

PATIENT
  Age: 34 Year
  Sex: Male
  Weight: 72 kg

DRUGS (7)
  1. BELATACEPT [Suspect]
     Indication: PROPHYLAXIS AGAINST TRANSPLANT REJECTION
  2. CELLCEPT [Concomitant]
  3. PREDNISONE [Concomitant]
  4. ALPRAZOLAM [Concomitant]
  5. METOPROLOL [Concomitant]
  6. NEXIUM [Concomitant]
  7. SODIUM BICARBONATE [Concomitant]

REACTIONS (1)
  - Deep vein thrombosis [None]
